FAERS Safety Report 6125985 (Version 4)
Quarter: 2013Q4

REPORT INFORMATION
  Report Type: Report from Study
  Country: CZ (occurrence: CZ)
  Receive Date: 20060912
  Receipt Date: 20131213
  Transmission Date: 20140711
  Serious: Yes (Death)
  Sender: FDA-Public Use
  Company Number: PHHO2006CZ14994

PATIENT
  Age: 73 Year
  Sex: Female

DRUGS (1)
  1. IMATINIB [Suspect]
     Dosage: 400 MG, QD
     Route: 048
     Dates: start: 20051114, end: 20060731

REACTIONS (1)
  - Adenocarcinoma pancreas [Fatal]
